FAERS Safety Report 7007973-1 (Version None)
Quarter: 2010Q3

REPORT INFORMATION
  Report Type: 
  Country: None (occurrence: None)
  Receive Date: 20100922
  Receipt Date: 20100917
  Transmission Date: 20110219
  Serious: Yes (Disabling)
  Sender: FDA-Public Use
  Company Number: DE-SANOFI-AVENTIS-2010SA041587

PATIENT
  Age: 77 Year
  Sex: Male
  Weight: 88 kg

DRUGS (4)
  1. TAXOTERE [Suspect]
     Route: 041
     Dates: start: 20091201, end: 20091201
  2. TAXOTERE [Suspect]
     Route: 041
     Dates: start: 20100601, end: 20100601
  3. MARCUMAR [Concomitant]
     Indication: PRODUCT USED FOR UNKNOWN INDICATION
  4. DEXAMETHASONE [Concomitant]
     Indication: PRODUCT USED FOR UNKNOWN INDICATION
     Route: 048
     Dates: start: 20091201, end: 20100601

REACTIONS (3)
  - DIAPHRAGMATIC DISORDER [None]
  - DYSPNOEA [None]
  - PHRENIC NERVE PARALYSIS [None]
